FAERS Safety Report 9698998 (Version 1)
Quarter: 2013Q4

REPORT INFORMATION
  Report Type: Spontaneous
  Country: GB (occurrence: GB)
  Receive Date: 20131120
  Receipt Date: 20131120
  Transmission Date: 20140711
  Serious: Yes (Other)
  Sender: FDA-Public Use
  Company Number: GB-PERRIGO-13GB011532

PATIENT
  Age: 38 Year
  Sex: Female

DRUGS (3)
  1. BROMOCRIPTINE MESYLATE USP RX 2.5 MG 2P6 [Suspect]
     Indication: PROLACTINOMA
     Dosage: UNK, UNK
     Route: 065
  2. QUINAGOLIDE [Suspect]
     Indication: PROLACTINOMA
     Dosage: UNK, UNK
     Route: 065
  3. CABERGOLINE [Suspect]
     Indication: PROLACTINOMA
     Dosage: UNK, UNK
     Route: 065

REACTIONS (1)
  - Neutropenia [Recovered/Resolved]
